FAERS Safety Report 5185423-8 (Version None)
Quarter: 2006Q4

REPORT INFORMATION
  Report Type: 
  Country: None (occurrence: None)
  Receive Date: 20061220
  Receipt Date: 20060718
  Transmission Date: 20070319
  Serious: No
  Sender: FDA-Public Use
  Company Number: US-GLAXOSMITHKLINE-A0612619A

PATIENT
  Age: 67 Year

DRUGS (1)
  1. EQUATE NTS 21MG [Suspect]
     Dates: start: 20060717, end: 20060718

REACTIONS (12)
  - ASTHENIA [None]
  - CHEST DISCOMFORT [None]
  - CHEST PAIN [None]
  - COUGH [None]
  - CRYING [None]
  - DIZZINESS [None]
  - ERUCTATION [None]
  - INSOMNIA [None]
  - NIGHTMARE [None]
  - PHARYNGOLARYNGEAL PAIN [None]
  - POOR QUALITY SLEEP [None]
  - SCREAMING [None]
